FAERS Safety Report 5987597-5 (Version None)
Quarter: 2008Q4

REPORT INFORMATION
  Report Type: 
  Country: None (occurrence: None)
  Receive Date: 20081128
  Receipt Date: 20080613
  Transmission Date: 20090506
  Serious: Yes (Other)
  Sender: FDA-Public Use
  Company Number: 2008SP011615

PATIENT
  Age: 63 Year
  Sex: Female
  Weight: 73.9363 kg

DRUGS (10)
  1. NASONEX [Suspect]
     Indication: RHINITIS ALLERGIC
     Dates: start: 20070118, end: 20070718
  2. VERAMYST [Suspect]
     Indication: RHINITIS ALLERGIC
     Dates: start: 20070801, end: 20080507
  3. OESTRADIOL [Concomitant]
  4. ZOLMITRIPTAN [Concomitant]
  5. CETIRIZINE HYDROCHLORIDE [Concomitant]
  6. PAROXETINE HCL [Concomitant]
  7. ATORVASTATIN CALCIUM [Concomitant]
  8. RISEDRONIC ACID [Concomitant]
  9. MONTELUKAST SODIUM [Concomitant]
  10. LISINOPRIL + HIDROCLOROTIAZIDA [Concomitant]

REACTIONS (1)
  - NASAL SEPTUM PERFORATION [None]
